FAERS Safety Report 4756253-3 (Version None)
Quarter: 2005Q3

REPORT INFORMATION
  Report Type: 
  Country: None (occurrence: None)
  Receive Date: 20050830
  Receipt Date: 20050516
  Transmission Date: 20060218
  Serious: Yes (Other)
  Sender: FDA-Public Use
  Company Number: US-GLAXOSMITHKLINE-A0558766A

PATIENT
  Age: 40 Year
  Sex: Female
  Weight: 61.4 kg

DRUGS (5)
  1. WELLBUTRIN XL [Suspect]
     Indication: DEPRESSION
     Route: 048
     Dates: start: 20041101, end: 20050507
  2. FLUOXETINE [Suspect]
     Indication: DEPRESSION
     Route: 048
     Dates: start: 20041201, end: 20050201
  3. LEXAPRO [Concomitant]
     Indication: DEPRESSION
     Dosage: 10MG PER DAY
     Route: 048
     Dates: start: 20050224, end: 20050501
  4. CELEBREX [Concomitant]
     Indication: BACK PAIN
     Route: 048
  5. BIRTH CONTROL [Concomitant]
     Route: 048

REACTIONS (6)
  - AMNESIA [None]
  - ANXIETY [None]
  - CONVULSION [None]
  - CYANOSIS [None]
  - MUSCLE CONTRACTURE [None]
  - MUSCLE RIGIDITY [None]
